FAERS Safety Report 15578945 (Version 1)
Quarter: 2018Q4

REPORT INFORMATION
  Report Type: Spontaneous
  Country: FR (occurrence: FR)
  Receive Date: 20181102
  Receipt Date: 20181102
  Transmission Date: 20190205
  Serious: Yes (Hospitalization)
  Sender: FDA-Public Use
  Company Number: FR-UCBSA-2018048505

PATIENT
  Age: 75 Year
  Sex: Male
  Weight: 76 kg

DRUGS (3)
  1. URBANYL [Suspect]
     Active Substance: CLOBAZAM
     Indication: CLONUS
     Dosage: 10 MG DAILY, UNK
     Route: 048
     Dates: start: 20180802, end: 20180802
  2. KEPPRA [Suspect]
     Active Substance: LEVETIRACETAM
     Indication: CLONUS
     Dosage: 1000 MG, DAILY DOSE
     Route: 048
     Dates: start: 20180802, end: 20180802
  3. ZOPICLONE [Suspect]
     Active Substance: ZOPICLONE
     Indication: CLONUS
     Dosage: 3.75 MG, DAILY DOSE
     Route: 048
     Dates: start: 20180802, end: 20180802

REACTIONS (1)
  - Lip swelling [Not Recovered/Not Resolved]

NARRATIVE: CASE EVENT DATE: 20180802
